FAERS Safety Report 5551517-8 (Version None)
Quarter: 2007Q4

REPORT INFORMATION
  Report Type: 
  Country: None (occurrence: None)
  Receive Date: 20071212
  Receipt Date: 20071130
  Transmission Date: 20080405
  Serious: Yes (Other)
  Sender: FDA-Public Use
  Company Number: FR-PFIZER INC-2006112844

PATIENT
  Sex: Female

DRUGS (7)
  1. LYRICA [Suspect]
     Indication: SCIATICA
     Route: 048
  2. BREXIN [Suspect]
     Indication: BACK PAIN
     Dates: start: 20060301, end: 20060101
  3. APRANAX [Suspect]
     Indication: BACK PAIN
     Dates: start: 20060901
  4. LANZOR [Suspect]
     Route: 048
     Dates: start: 20060101, end: 20060901
  5. SURGESTONE [Concomitant]
     Route: 048
  6. TRAMADOL HCL [Concomitant]
  7. PARACETAMOL [Concomitant]

REACTIONS (2)
  - CORNEAL OEDEMA [None]
  - PRURITUS [None]
